FAERS Safety Report 19289615 (Version 2)
Quarter: 2021Q2

REPORT INFORMATION
  Report Type: Spontaneous
  Country: GB (occurrence: GB)
  Receive Date: 20210521
  Receipt Date: 20210614
  Transmission Date: 20210717
  Serious: Yes (Life-Threatening, Hospitalization, Other)
  Sender: FDA-Public Use
  Company Number: NVSC2021GB107133

PATIENT
  Age: 55 Year
  Sex: Male
  Weight: 75 kg

DRUGS (3)
  1. SECUKINUMAB. [Suspect]
     Active Substance: SECUKINUMAB
     Dosage: UNK
     Route: 065
     Dates: end: 202001
  2. SECUKINUMAB. [Suspect]
     Active Substance: SECUKINUMAB
     Indication: ANKYLOSING SPONDYLITIS
     Dosage: UNK, UNKNOWN
     Route: 065
     Dates: start: 201703
  3. SECUKINUMAB. [Suspect]
     Active Substance: SECUKINUMAB
     Dosage: 150 MG, QMO
     Route: 058
     Dates: start: 20180208, end: 20191205

REACTIONS (7)
  - Pneumonia [Unknown]
  - Pleural effusion [Unknown]
  - Interstitial lung disease [Recovered/Resolved]
  - Lung opacity [Unknown]
  - Pneumonitis [Recovered/Resolved]
  - Systemic lupus erythematosus [Unknown]
  - Lymphadenopathy mediastinal [Unknown]

NARRATIVE: CASE EVENT DATE: 20200101
